FAERS Safety Report 12360507 (Version 2)
Quarter: 2016Q2

REPORT INFORMATION
  Report Type: Report from Study
  Country: DE (occurrence: DE)
  Receive Date: 20160512
  Receipt Date: 20160520
  Transmission Date: 20160815
  Serious: Yes (Life-Threatening, Hospitalization)
  Sender: FDA-Public Use
  Company Number: DE-CELGENEUS-DEU-2016044917

PATIENT
  Age: 75 Year
  Sex: Female

DRUGS (13)
  1. ATEZOLIZUMAB [Suspect]
     Active Substance: ATEZOLIZUMAB
     Indication: BREAST CANCER METASTATIC
     Route: 041
     Dates: start: 20160229, end: 20160329
  2. OLANZAPINE (OLANZAPIN) [Concomitant]
     Indication: DEPRESSION
     Dosage: 840 MILLIGRAM
     Route: 065
  3. VERAPAMIL HYDROCHLORIDE (ISOPTIN) [Concomitant]
     Indication: ATRIAL FLUTTER
     Route: 065
  4. DULOXETINE HYDROCHLORIDE (CYMBALTA) [Concomitant]
     Indication: DEPRESSION
     Route: 065
  5. CALCIUM [Concomitant]
     Active Substance: CALCIUM
     Indication: PRODUCT USED FOR UNKNOWN INDICATION
     Route: 065
  6. SOLIFENACIN SUCCINATE (VESIKUR) [Concomitant]
     Indication: PRODUCT USED FOR UNKNOWN INDICATION
     Route: 065
  7. FUROSEMIDE (FUROSEMID) [Concomitant]
     Indication: OEDEMA
     Route: 065
  8. ALOXI [Concomitant]
     Active Substance: PALONOSETRON HYDROCHLORIDE
     Indication: NAUSEA
     Route: 065
     Dates: start: 20160229
  9. ABRAXANE [Suspect]
     Active Substance: PACLITAXEL
     Indication: BREAST CANCER METASTATIC
     Dosage: 100 MILLIGRAM/SQ. METER
     Route: 041
     Dates: start: 20160229, end: 20160405
  10. VITAMIN D [Concomitant]
     Active Substance: CHOLECALCIFEROL
     Indication: PRODUCT USED FOR UNKNOWN INDICATION
     Route: 065
  11. LEVOTHYROXINE (L-THYROXINE) [Concomitant]
     Indication: THYROID OPERATION
     Route: 065
  12. RAMIPRIL. [Concomitant]
     Active Substance: RAMIPRIL
     Indication: ATRIAL FLUTTER
     Route: 065
  13. DEKRISTOL [Concomitant]
     Active Substance: CHOLECALCIFEROL
     Indication: PRODUCT USED FOR UNKNOWN INDICATION
     Route: 065
     Dates: start: 20160215

REACTIONS (2)
  - Respiratory distress [Not Recovered/Not Resolved]
  - Infective exacerbation of chronic obstructive airways disease [Recovering/Resolving]

NARRATIVE: CASE EVENT DATE: 20160409
